FAERS Safety Report 4556229-5 (Version None)
Quarter: 2005Q1

REPORT INFORMATION
  Report Type: 
  Country: None (occurrence: None)
  Receive Date: 20050119
  Receipt Date: 20030730
  Transmission Date: 20050727
  Serious: Yes (Other)
  Sender: FDA-Public Use
  Company Number: US-MERCK-0307USA03537

PATIENT
  Age: 49 Year
  Sex: Female

DRUGS (10)
  1. VIOXX [Suspect]
     Indication: ARTHRALGIA
     Route: 048
     Dates: start: 20000801
  2. VIOXX [Suspect]
     Route: 048
  3. [THERAPY UNSPECIFIED] [Concomitant]
     Route: 065
  4. FLONASE [Concomitant]
     Route: 065
     Dates: start: 20000101
  5. PREMARIN [Concomitant]
     Route: 065
     Dates: start: 20000801
  6. HYDROXYCHLOROQUINE SULFATE [Concomitant]
     Route: 065
     Dates: start: 20000201
  7. ZOLOFT [Concomitant]
     Route: 065
     Dates: start: 19991101
  8. AMBIEN [Concomitant]
     Route: 065
     Dates: start: 19991101
  9. DAYPRO [Concomitant]
     Route: 065
     Dates: start: 19991201
  10. CLARITIN [Concomitant]
     Route: 065
     Dates: start: 19991101

REACTIONS (22)
  - ABDOMINAL PAIN [None]
  - ABNORMAL FAECES [None]
  - CONSTIPATION [None]
  - DEPRESSION [None]
  - DIARRHOEA [None]
  - DYSPHAGIA [None]
  - GASTRIC DISORDER [None]
  - GASTROOESOPHAGEAL REFLUX DISEASE [None]
  - HAEMORRHOIDS [None]
  - HEADACHE [None]
  - IRRITABLE BOWEL SYNDROME [None]
  - LABYRINTHITIS [None]
  - OVARIAN CYST [None]
  - PANIC DISORDER [None]
  - PEPTIC ULCER [None]
  - PROCTALGIA [None]
  - RECTAL HAEMORRHAGE [None]
  - RHEUMATOID ARTHRITIS [None]
  - RHINITIS ALLERGIC [None]
  - SYSTEMIC LUPUS ERYTHEMATOSUS [None]
  - URETHRAL STRICTURE [None]
  - VERTIGO [None]
